FAERS Safety Report 22356113 (Version 9)
Quarter: 2025Q2

REPORT INFORMATION
  Report Type: Report from Study
  Country: CO (occurrence: CO)
  Receive Date: 20230523
  Receipt Date: 20250407
  Transmission Date: 20250717
  Serious: Yes (Hospitalization, Other)
  Sender: NOVARTIS
  Company Number: CO-002147023-NVSC2023CO079932

PATIENT
  Age: 44 Year
  Sex: Male
  Weight: 87 kg

DRUGS (13)
  1. KESIMPTA [Suspect]
     Active Substance: OFATUMUMAB
     Indication: Relapsing-remitting multiple sclerosis
     Dosage: 20 MG, QMO (START DATE SIX MONTH AGO)
     Route: 058
     Dates: start: 20221212
  2. KESIMPTA [Suspect]
     Active Substance: OFATUMUMAB
     Route: 058
     Dates: start: 20240706
  3. KESIMPTA [Suspect]
     Active Substance: OFATUMUMAB
     Dosage: 20 MG, QMO
     Route: 058
     Dates: start: 202409, end: 202409
  4. KESIMPTA [Suspect]
     Active Substance: OFATUMUMAB
     Route: 058
     Dates: start: 20241028
  5. KESIMPTA [Suspect]
     Active Substance: OFATUMUMAB
     Dosage: 20 MG, QMO
     Route: 058
  6. KESIMPTA [Suspect]
     Active Substance: OFATUMUMAB
     Route: 065
     Dates: start: 20250120
  7. KESIMPTA [Suspect]
     Active Substance: OFATUMUMAB
     Dosage: 20 MG, QMO
     Route: 058
  8. EMTRICITABINE [Concomitant]
     Active Substance: EMTRICITABINE
     Indication: HIV infection
     Dosage: UNK, Q24H (START DATE: NINE YEARS AGO
     Route: 048
  9. EMTRICITABINE [Concomitant]
     Active Substance: EMTRICITABINE
     Dosage: 150 MG, QD
     Route: 065
     Dates: start: 2024
  10. TENOFOVIR [Concomitant]
     Active Substance: TENOFOVIR
     Indication: Hepatitis B
     Dosage: UNK, Q24H (START DATE NINE YEARS AGO)
     Route: 048
  11. TENOFOVIR [Concomitant]
     Active Substance: TENOFOVIR
     Route: 065
     Dates: start: 2024
  12. PREGABALIN [Concomitant]
     Active Substance: PREGABALIN
     Indication: Neuritis
     Dosage: 150 MG, Q12H (START DATE REPORTED AS TWO NINE YEARS)
     Route: 048
  13. PREGABALIN [Concomitant]
     Active Substance: PREGABALIN
     Indication: Neuropathy peripheral
     Dosage: 75 MG, Q12H
     Route: 065
     Dates: start: 2024

REACTIONS (20)
  - Vertigo [Unknown]
  - Arthralgia [Unknown]
  - Vision blurred [Not Recovered/Not Resolved]
  - Pain in extremity [Unknown]
  - Multiple sclerosis relapse [Unknown]
  - Multiple sclerosis [Recovering/Resolving]
  - Incontinence [Recovering/Resolving]
  - Dizziness [Recovering/Resolving]
  - Anal blister [Unknown]
  - Blister [Unknown]
  - Gait disturbance [Unknown]
  - Malaise [Unknown]
  - Anal sphincter atony [Not Recovered/Not Resolved]
  - Oral mucosal blistering [Not Recovered/Not Resolved]
  - Weight decreased [Unknown]
  - Insomnia [Unknown]
  - Nervous system disorder [Unknown]
  - Memory impairment [Not Recovered/Not Resolved]
  - Cognitive disorder [Not Recovered/Not Resolved]
  - Product availability issue [Unknown]

NARRATIVE: CASE EVENT DATE: 20240301
